FAERS Safety Report 5959544-3 (Version None)
Quarter: 2008Q4

REPORT INFORMATION
  Report Type: 
  Country: None (occurrence: None)
  Receive Date: 20081117
  Receipt Date: 20081029
  Transmission Date: 20090506
  Serious: Yes (Life-Threatening, Hospitalization)
  Sender: FDA-Public Use
  Company Number: DSA_32619_2008

PATIENT
  Sex: Female

DRUGS (11)
  1. LORAZEPAM [Suspect]
     Indication: DRUG USE FOR UNKNOWN INDICATION
     Dosage: 10 MG QD ORAL; 5.5 MG QD ORAL
     Route: 048
     Dates: start: 20080902, end: 20080904
  2. LORAZEPAM [Suspect]
     Indication: DRUG USE FOR UNKNOWN INDICATION
     Dosage: 10 MG QD ORAL; 5.5 MG QD ORAL
     Route: 048
     Dates: start: 20080905, end: 20080908
  3. LITHIUM CARBONATE [Suspect]
     Indication: DRUG USE FOR UNKNOWN INDICATION
     Dosage: 900 MG QD ORAL, 450 MG QD ORAL
     Route: 048
     Dates: end: 20080906
  4. LITHIUM CARBONATE [Suspect]
     Indication: DRUG USE FOR UNKNOWN INDICATION
     Dosage: 900 MG QD ORAL, 450 MG QD ORAL
     Route: 048
     Dates: start: 20080907, end: 20080910
  5. SEROQUEL [Suspect]
     Indication: DRUG USE FOR UNKNOWN INDICATION
     Dosage: 250 MG QD ORAL; 350 MG QD ORAL; 200 MG QD ORAL; 175 MG QD ORAL; 300 MG QD ORAL
     Route: 048
     Dates: start: 20080724, end: 20080905
  6. SEROQUEL [Suspect]
     Indication: DRUG USE FOR UNKNOWN INDICATION
     Dosage: 250 MG QD ORAL; 350 MG QD ORAL; 200 MG QD ORAL; 175 MG QD ORAL; 300 MG QD ORAL
     Route: 048
     Dates: start: 20080905, end: 20080907
  7. SEROQUEL [Suspect]
     Indication: DRUG USE FOR UNKNOWN INDICATION
     Dosage: 250 MG QD ORAL; 350 MG QD ORAL; 200 MG QD ORAL; 175 MG QD ORAL; 300 MG QD ORAL
     Route: 048
     Dates: start: 20080908, end: 20080909
  8. SEROQUEL [Suspect]
     Indication: DRUG USE FOR UNKNOWN INDICATION
     Dosage: 250 MG QD ORAL; 350 MG QD ORAL; 200 MG QD ORAL; 175 MG QD ORAL; 300 MG QD ORAL
     Route: 048
     Dates: start: 20080910, end: 20080910
  9. SEROQUEL [Suspect]
     Indication: DRUG USE FOR UNKNOWN INDICATION
     Dosage: 250 MG QD ORAL; 350 MG QD ORAL; 200 MG QD ORAL; 175 MG QD ORAL; 300 MG QD ORAL
     Route: 048
     Dates: start: 20080101
  10. ZYPREXA [Suspect]
     Indication: DRUG USE FOR UNKNOWN INDICATION
     Dosage: 20 MG QD ORAL; 10 MG QD ORAL
     Route: 048
     Dates: start: 20080724, end: 20080902
  11. ZYPREXA [Suspect]
     Indication: DRUG USE FOR UNKNOWN INDICATION
     Dosage: 20 MG QD ORAL; 10 MG QD ORAL
     Route: 048
     Dates: start: 20080903, end: 20080906

REACTIONS (21)
  - AGITATION [None]
  - APATHY [None]
  - DELIRIUM [None]
  - DEPRESSED MOOD [None]
  - DIABETES INSIPIDUS [None]
  - DISORIENTATION [None]
  - DRUG DEPENDENCE [None]
  - EXTRAPYRAMIDAL DISORDER [None]
  - HYPERNATRAEMIA [None]
  - INCOHERENT [None]
  - MUSCLE RIGIDITY [None]
  - MUTISM [None]
  - NEUROLEPTIC MALIGNANT SYNDROME [None]
  - PARKINSONIAN GAIT [None]
  - PYREXIA [None]
  - RENAL FAILURE [None]
  - SEDATION [None]
  - SPEECH DISORDER [None]
  - STUPOR [None]
  - THINKING ABNORMAL [None]
  - TREMOR [None]
